FAERS Safety Report 9894932 (Version 1)
Quarter: 2014Q1

REPORT INFORMATION
  Report Type: Spontaneous
  Country: US (occurrence: US)
  Receive Date: 20140213
  Receipt Date: 20140213
  Transmission Date: 20141002
  Serious: No
  Sender: FDA-Public Use
  Company Number: US-TEVA-461621USA

PATIENT
  Age: 56 Year
  Sex: Male
  Weight: 78.54 kg

DRUGS (19)
  1. PROAIR HFA [Suspect]
     Indication: CHRONIC OBSTRUCTIVE PULMONARY DISEASE
     Route: 055
     Dates: start: 2010
  2. PROAIR HFA [Suspect]
     Indication: ASTHMA
  3. PROAIR HFA [Suspect]
     Indication: BRONCHITIS CHRONIC
  4. PROAIR HFA [Suspect]
     Indication: EMPHYSEMA
  5. ALBUTEROL [Concomitant]
     Indication: CHRONIC OBSTRUCTIVE PULMONARY DISEASE
  6. ALBUTEROL [Concomitant]
     Indication: ASTHMA
  7. ALBUTEROL [Concomitant]
     Indication: BRONCHITIS CHRONIC
  8. ALBUTEROL [Concomitant]
     Indication: EMPHYSEMA
  9. IPRATROPIUM BROMIDE [Concomitant]
     Indication: CHRONIC OBSTRUCTIVE PULMONARY DISEASE
  10. IPRATROPIUM BROMIDE [Concomitant]
     Indication: ASTHMA
  11. IPRATROPIUM BROMIDE [Concomitant]
     Indication: BRONCHITIS CHRONIC
  12. IPRATROPIUM BROMIDE [Concomitant]
     Indication: EMPHYSEMA
  13. TRAMADOL [Concomitant]
     Indication: PAIN
  14. METHOCARBAMOL [Concomitant]
     Indication: MUSCLE SPASMS
  15. TEMAZEPAM [Concomitant]
     Indication: SLEEP DISORDER
  16. CLONAZEPAM [Concomitant]
     Indication: POST-TRAUMATIC STRESS DISORDER
     Dosage: 1 MILLIGRAM DAILY;
  17. CLONAZEPAM [Concomitant]
     Indication: CRANIOCEREBRAL INJURY
  18. HYDROXYZINE [Concomitant]
     Indication: ANXIETY
  19. IBUPROFEN [Concomitant]
     Indication: PAIN

REACTIONS (1)
  - Breath alcohol test positive [Recovered/Resolved]
